FAERS Safety Report 10786932 (Version 2)
Quarter: 2015Q1

REPORT INFORMATION
  Report Type: Spontaneous
  Country: ZA (occurrence: ZA)
  Receive Date: 20150211
  Receipt Date: 20150218
  Transmission Date: 20150721
  Serious: Yes (Hospitalization, Other)
  Sender: FDA-Public Use
  Company Number: ZA-PFIZER INC-2015051194

PATIENT
  Age: 41 Year
  Sex: Female

DRUGS (3)
  1. ASPAVOR [Suspect]
     Active Substance: ATORVASTATIN
     Indication: BLOOD CHOLESTEROL INCREASED
     Dosage: 20 MG, UNK
     Route: 048
     Dates: start: 201304
  2. TAREG [Concomitant]
     Active Substance: VALSARTAN
     Indication: HYPERTENSION
     Dosage: 160 MG, DAILY
     Route: 048
     Dates: start: 2012
  3. ROBAXIN [Concomitant]
     Active Substance: METHOCARBAMOL
     Indication: MYALGIA
     Dosage: 500 MG, UNK
     Route: 048
     Dates: start: 201311

REACTIONS (3)
  - Vaginal haemorrhage [Not Recovered/Not Resolved]
  - Uterine leiomyoma [Unknown]
  - Pelvic pain [Unknown]

NARRATIVE: CASE EVENT DATE: 201403
